FAERS Safety Report 6377742-4 (Version None)
Quarter: 2009Q3

REPORT INFORMATION
  Report Type: 
  Country: None (occurrence: None)
  Receive Date: 20090925
  Receipt Date: 20090908
  Transmission Date: 20100115
  Serious: Yes (Other)
  Sender: FDA-Public Use
  Company Number: CHPA2009US18352

PATIENT
  Sex: Female
  Weight: 63.492 kg

DRUGS (3)
  1. MAALOX ANTACID/ANTIGAS RS LIQ COOL MINT (NCH) [Suspect]
     Indication: GASTROOESOPHAGEAL REFLUX DISEASE
     Dosage: UNK
     Route: 048
     Dates: start: 20050101, end: 20090601
  2. PRILOSEC [Concomitant]
     Indication: GASTROOESOPHAGEAL REFLUX DISEASE
     Dosage: 20 MG, QD
     Route: 048
     Dates: start: 20070101
  3. TYLENOL (CAPLET) [Concomitant]
     Indication: PAIN
     Dosage: 500 MG, BID ( 1 CAPLET IN AM AND 1 @ HS
     Route: 048

REACTIONS (3)
  - CEREBROVASCULAR ACCIDENT [None]
  - CHEST PAIN [None]
  - HYPOAESTHESIA [None]
